FAERS Safety Report 5845782-7 (Version None)
Quarter: 2008Q3

REPORT INFORMATION
  Report Type: 
  Country: None (occurrence: None)
  Receive Date: 20080731
  Receipt Date: 20080528
  Transmission Date: 20090109
  Serious: No
  Sender: FDA-Public Use
  Company Number: US200805005973

PATIENT
  Sex: Female

DRUGS (6)
  1. BYETTA [Suspect]
  2. EXENATIDE PEN, DISPOSABLE DEVICE (EXENATIDE PEN) PEN,DISPOSABLE [Concomitant]
  3. AVANDIA [Concomitant]
  4. GLUCOPHAGE [Concomitant]
  5. FORTAMET (METFORMIN HYDROCHLORIDE) [Concomitant]
  6. DRUG USED IN DIABETES [Concomitant]

REACTIONS (3)
  - DRUG HYPERSENSITIVITY [None]
  - PRURITUS [None]
  - RASH [None]
